FAERS Safety Report 18616995 (Version 2)
Quarter: 2020Q4

REPORT INFORMATION
  Report Type: Spontaneous
  Country: US (occurrence: US)
  Receive Date: 20201215
  Receipt Date: 20201226
  Transmission Date: 20210114
  Serious: Yes (Life-Threatening, Hospitalization, Other)
  Sender: FDA-Public Use
  Company Number: US-ACCORD-210841

PATIENT
  Age: 49 Year
  Sex: Female

DRUGS (3)
  1. MYCOPHENOLIC ACID. [Suspect]
     Active Substance: MYCOPHENOLIC ACID
     Indication: SYSTEMIC LUPUS ERYTHEMATOSUS
  2. MYCOPHENOLIC ACID. [Suspect]
     Active Substance: MYCOPHENOLIC ACID
     Indication: NEUROMYELITIS OPTICA SPECTRUM DISORDER
     Dates: start: 2003
  3. PREDNISONE. [Suspect]
     Active Substance: PREDNISONE
     Indication: SYSTEMIC LUPUS ERYTHEMATOSUS

REACTIONS (8)
  - Nocardiosis [Recovering/Resolving]
  - Off label use [Unknown]
  - Brain abscess [Recovering/Resolving]
  - Lung abscess [Recovering/Resolving]
  - Muscle abscess [Recovering/Resolving]
  - Respiratory failure [Recovering/Resolving]
  - Adrenal insufficiency [Recovering/Resolving]
  - Septic embolus [Recovered/Resolved]
